FAERS Safety Report 8479581 (Version 2)
Quarter: 2012Q4

REPORT INFORMATION
  Report Type: Report from Study
  Country: DE (occurrence: DE)
  Receive Date: 20120328
  Receipt Date: 20121119
  Transmission Date: 20130627
  Serious: Yes (Hospitalization)
  Sender: FDA-Public Use
  Company Number: DE-UCBSA-054039

PATIENT
  Age: 73 Year
  Sex: Male
  Weight: 70 kg

DRUGS (1)
  1. ROTIGOTINE [Suspect]
     Indication: PARKINSON^S DISEASE

REACTIONS (1)
  - Intestinal polyp [Recovered/Resolved]
